FAERS Safety Report 7701566-6 (Version None)
Quarter: 2011Q3

REPORT INFORMATION
  Report Type: 
  Country: None (occurrence: None)
  Receive Date: 20110822
  Receipt Date: 20110815
  Transmission Date: 20111222
  Serious: Yes (Other)
  Sender: FDA-Public Use
  Company Number: US-NAPPMUNDI-GBR-2011-0008674

PATIENT
  Age: 46 Year
  Sex: Female

DRUGS (8)
  1. COCAINE [Concomitant]
  2. MORPHINE SULFATE [Suspect]
     Indication: PAIN
     Dosage: 120 MG, DAILY
     Route: 048
  3. HYDROMORPHONE HCL [Concomitant]
     Indication: PAIN
     Route: 042
  4. HYDROCODONE [Concomitant]
  5. MORPHINE SULFATE [Suspect]
     Dosage: 180 MG, DAILY
     Route: 048
  6. ALPRAZOLAM [Concomitant]
     Indication: ANXIETY
  7. MARIJUANA [Concomitant]
  8. GABAPENTIN [Concomitant]

REACTIONS (1)
  - PELVIC PAIN [None]
